FAERS Safety Report 4661394-5 (Version None)
Quarter: 2005Q2

REPORT INFORMATION
  Report Type: 
  Country: None (occurrence: None)
  Receive Date: 20050513
  Receipt Date: 20050421
  Transmission Date: 20051028
  Serious: Yes (Other)
  Sender: FDA-Public Use
  Company Number: GB-SANOFI-SYNTHELABO-A01200502783

PATIENT
  Sex: Female

DRUGS (2)
  1. PLAVIX [Suspect]
     Indication: DRUG USE FOR UNKNOWN INDICATION
     Dosage: UNK
     Route: 048
  2. THYROXINE [Concomitant]
     Indication: HYPOTHYROIDISM
     Route: 065

REACTIONS (4)
  - CONFUSIONAL STATE [None]
  - FAECAL INCONTINENCE [None]
  - FATIGUE [None]
  - INTESTINAL PROLAPSE [None]
